FAERS Safety Report 6533872-5 (Version None)
Quarter: 2010Q1

REPORT INFORMATION
  Report Type: 
  Country: None (occurrence: None)
  Receive Date: 20100111
  Receipt Date: 20091027
  Transmission Date: 20100710
  Serious: No
  Sender: FDA-Public Use
  Company Number: US-ABBOTT-09P-163-0606074-00

PATIENT
  Sex: Male
  Weight: 97.61 kg

DRUGS (3)
  1. VICODIN [Suspect]
     Indication: NERVE INJURY
     Dosage: 5-500MG, 3-4 PER DAY, AS NEEDED
     Route: 048
     Dates: start: 20060101, end: 20090901
  2. VICODIN [Suspect]
     Dates: start: 20091001
  3. NEURONTIN [Concomitant]
     Indication: NERVE INJURY
     Dosage: 3-4 TABS PER DAY, AS NEEDED
     Route: 048

REACTIONS (1)
  - DRUG SCREEN POSITIVE [None]
